FAERS Safety Report 10636245 (Version 1)
Quarter: 2014Q4

REPORT INFORMATION
  Report Type: Spontaneous
  Country: IN (occurrence: IN)
  Receive Date: 20141206
  Receipt Date: 20141206
  Transmission Date: 20150529
  Serious: Yes (Other)
  Sender: FDA-Public Use
  Company Number: IN-ROCHE-1501855

PATIENT
  Age: 48 Year
  Sex: Female

DRUGS (1)
  1. AVASTIN [Suspect]
     Active Substance: BEVACIZUMAB
     Indication: RETINAL HAEMORRHAGE
     Dosage: 1.25 MG/0.05 ML
     Route: 050
     Dates: start: 20141009

REACTIONS (3)
  - Vision blurred [Recovered/Resolved with Sequelae]
  - Ocular hyperaemia [Recovered/Resolved with Sequelae]
  - Eye pain [Recovered/Resolved with Sequelae]

NARRATIVE: CASE EVENT DATE: 20141009
